FAERS Safety Report 21615338 (Version 2)
Quarter: 2022Q4

REPORT INFORMATION
  Report Type: Spontaneous
  Country: US (occurrence: US)
  Receive Date: 20221118
  Receipt Date: 20221221
  Transmission Date: 20230112
  Serious: No
  Sender: FDA-Public Use
  Company Number: US-INSUD PHARMA-2211US04783

PATIENT

DRUGS (1)
  1. SLYND [Suspect]
     Active Substance: DROSPIRENONE
     Indication: Product used for unknown indication
     Dosage: UNK
     Route: 048
     Dates: start: 202207

REACTIONS (4)
  - Menstruation irregular [Unknown]
  - Mood swings [Unknown]
  - Libido decreased [Unknown]
  - Heavy menstrual bleeding [Unknown]

NARRATIVE: CASE EVENT DATE: 20220101
